FAERS Safety Report 8876343 (Version 4)
Quarter: 2014Q1

REPORT INFORMATION
  Report Type: Report from Study
  Country: DE (occurrence: DE)
  Receive Date: 20121023
  Receipt Date: 20140110
  Transmission Date: 20141002
  Serious: Yes (Hospitalization)
  Sender: FDA-Public Use
  Company Number: DE-ROCHE-803366

PATIENT
  Age: 66 Year
  Sex: Female
  Weight: 76 kg

DRUGS (6)
  1. TOCILIZUMAB [Suspect]
     Indication: RHEUMATOID ARTHRITIS
     Route: 042
     Dates: start: 20110405, end: 20110914
  2. TOCILIZUMAB [Suspect]
     Route: 042
  3. LEFLUNOMIDE [Concomitant]
     Indication: RHEUMATOID ARTHRITIS
     Route: 048
     Dates: start: 2009, end: 20111005
  4. DICLOFENAC [Concomitant]
     Route: 048
     Dates: start: 2009
  5. PANTOPRAZOLE [Concomitant]
     Route: 048
     Dates: start: 201109
  6. ORENCIA [Concomitant]
     Route: 058
     Dates: start: 20121113

REACTIONS (8)
  - Ulcerative keratitis [Recovered/Resolved]
  - Colon cancer [Recovered/Resolved]
  - Anastomotic complication [Recovered/Resolved]
  - Impaired healing [Recovered/Resolved]
  - Intestinal anastomosis [Recovered/Resolved]
  - Clavicle fracture [Recovered/Resolved]
  - Fall [Unknown]
  - Sjogren^s syndrome [Unknown]
